FAERS Safety Report 4302076-9 (Version None)
Quarter: 2004Q1

REPORT INFORMATION
  Report Type: 
  Country: None (occurrence: None)
  Receive Date: 20040220
  Receipt Date: 20040209
  Transmission Date: 20041129
  Serious: Yes (Death, Other)
  Sender: FDA-Public Use
  Company Number: 2004008684

PATIENT
  Age: 68 Year
  Sex: Female
  Weight: 57.2 kg

DRUGS (3)
  1. LIPITOR [Suspect]
     Indication: HYPERCHOLESTEROLAEMIA
     Dosage: 20 MG (DAILY), ORAL
     Route: 048
     Dates: start: 20010809, end: 20030908
  2. ATENOLOL [Concomitant]
  3. CHLORMAPHENICOL (CHLORAMPHENICOL) [Concomitant]

REACTIONS (1)
  - MYELODYSPLASTIC SYNDROME [None]
